FAERS Safety Report 4730323-8 (Version None)
Quarter: 2005Q3

REPORT INFORMATION
  Report Type: 
  Country: None (occurrence: None)
  Receive Date: 20050801
  Receipt Date: 20050719
  Transmission Date: 20060218
  Serious: Yes (Death)
  Sender: FDA-Public Use
  Company Number: CA-JNJFOC-20050703252

PATIENT
  Sex: Male

DRUGS (1)
  1. DURAGESIC-100 [Suspect]
     Indication: CANCER PAIN
     Dosage: 1 EVERY 55-72 HOURS
     Route: 062
     Dates: start: 19961101, end: 19970101

REACTIONS (1)
  - DEATH [None]
